FAERS Safety Report 5449598-5 (Version None)
Quarter: 2007Q3

REPORT INFORMATION
  Report Type: 
  Country: None (occurrence: None)
  Receive Date: 20070912
  Receipt Date: 20070907
  Transmission Date: 20080115
  Serious: Yes (Life-Threatening, Hospitalization, Other)
  Sender: FDA-Public Use
  Company Number: PHHO2006IT01920

PATIENT
  Age: 61 Year
  Sex: Female
  Weight: 57 kg

DRUGS (3)
  1. TAMOXIFEN CITRATE [Suspect]
     Indication: BREAST CANCER
     Dosage: DOUBLE BLIND
     Route: 048
     Dates: start: 20020301, end: 20050926
  2. TAMOXIFEN CITRATE [Suspect]
     Dosage: NO TREATMENT
     Dates: start: 20050927, end: 20051014
  3. TAMOXIFEN CITRATE [Suspect]
     Dosage: UNK, UNK
     Route: 048
     Dates: start: 20051015, end: 20051026

REACTIONS (17)
  - ABDOMINAL PAIN UPPER [None]
  - BILIARY DRAINAGE [None]
  - BLOOD AMYLASE INCREASED [None]
  - CHOLECYSTECTOMY [None]
  - CHOLELITHIASIS [None]
  - EXERESIS [None]
  - HYPERPYREXIA [None]
  - LAPAROTOMY [None]
  - LIPASE INCREASED [None]
  - OEDEMA MUCOSAL [None]
  - PANCREATIC ABSCESS [None]
  - PANCREATIC OPERATION [None]
  - PANCREATITIS NECROTISING [None]
  - PETECHIAE [None]
  - PLEURAL EFFUSION [None]
  - RESPIRATORY FAILURE [None]
  - THORACIC CAVITY DRAINAGE [None]
